FAERS Safety Report 14298601 (Version 2)
Quarter: 2018Q1

REPORT INFORMATION
  Report Type: Spontaneous
  Country: GB (occurrence: GB)
  Receive Date: 20171218
  Receipt Date: 20180104
  Transmission Date: 20180509
  Serious: Yes (Other)
  Sender: FDA-Public Use
  Company Number: GB-TEVA-2017-GB-833355

PATIENT
  Age: 43 Year
  Sex: Male

DRUGS (3)
  1. CLARITHROMYCIN. [Suspect]
     Active Substance: CLARITHROMYCIN
     Indication: ALOPECIA SCARRING
     Dosage: FOR THREE MONTHS
     Route: 065
  2. RIFAMPICIN [Concomitant]
     Active Substance: RIFAMPIN
     Indication: ALOPECIA SCARRING
     Dosage: FOR TWO MONTHS
     Route: 065
  3. FUSIDIC ACID [Concomitant]
     Active Substance: FUSIDIC ACID
     Indication: ALOPECIA SCARRING
     Dosage: FOR A MONTH
     Route: 065

REACTIONS (1)
  - Neutropenia [Unknown]
